FAERS Safety Report 16628653 (Version 1)
Quarter: 2019Q3

REPORT INFORMATION
  Report Type: Spontaneous
  Country: CN (occurrence: CN)
  Receive Date: 20190725
  Receipt Date: 20190725
  Transmission Date: 20191004
  Serious: Yes (Other)
  Sender: FDA-Public Use
  Company Number: CN-PFIZER INC-2019313832

PATIENT
  Age: 32 Year
  Sex: Female
  Weight: 54 kg

DRUGS (2)
  1. SODIUM CHLORIDE. [Concomitant]
     Active Substance: SODIUM CHLORIDE
     Indication: VEHICLE SOLUTION USE
     Dosage: 10 ML, 1X/DAY
     Route: 030
     Dates: start: 20190628, end: 20190702
  2. METHOTREXATE. [Suspect]
     Active Substance: METHOTREXATE
     Indication: ECTOPIC PREGNANCY TERMINATION
     Dosage: 0.021 G, 1X/DAY
     Route: 030
     Dates: start: 20190628, end: 20190702

REACTIONS (4)
  - Hepatic function abnormal [Recovering/Resolving]
  - Off label use [Unknown]
  - Product use in unapproved indication [Unknown]
  - Liver injury [Unknown]

NARRATIVE: CASE EVENT DATE: 20190703
